FAERS Safety Report 18990712 (Version 1)
Quarter: 2021Q1

REPORT INFORMATION
  Report Type: Spontaneous
  Country: BR (occurrence: BR)
  Receive Date: 20210310
  Receipt Date: 20210310
  Transmission Date: 20210420
  Serious: Yes (Other)
  Sender: FDA-Public Use
  Company Number: BR-AMGEN-BRASP2021034806

PATIENT

DRUGS (3)
  1. BLINCYTO [Suspect]
     Active Substance: BLINATUMOMAB
     Dosage: 5 MICROGRAM/SQ. METER
     Route: 065
     Dates: start: 20210216, end: 202102
  2. BLINCYTO [Suspect]
     Active Substance: BLINATUMOMAB
     Indication: ACUTE LYMPHOCYTIC LEUKAEMIA
     Dosage: 5 MICROGRAM/SQ. METER
     Route: 065
     Dates: start: 20210127, end: 20210211
  3. BLINCYTO [Suspect]
     Active Substance: BLINATUMOMAB
     Dosage: 15 MICROGRAM/SQ. METER
     Route: 065
     Dates: start: 20210222, end: 20210228

REACTIONS (2)
  - Off label use [Unknown]
  - Cholangitis [Unknown]

NARRATIVE: CASE EVENT DATE: 20210127
